FAERS Safety Report 6614236 (Version 7)
Quarter: 2015Q1

REPORT INFORMATION
  Report Type: Report from Study
  Country: JP (occurrence: JP)
  Receive Date: 20080414
  Receipt Date: 20150101
  Transmission Date: 20150721
  Serious: Yes (Life-Threatening, Hospitalization)
  Sender: FDA-Public Use
  Company Number: JP-ROCHE-555835

PATIENT
  Age: 71 Year
  Sex: Male
  Weight: 59.7 kg

DRUGS (19)
  1. CAPECITABINE. [Suspect]
     Active Substance: CAPECITABINE
     Indication: GASTRIC CANCER
     Dosage: GIVEN ON DAY 1-14 DURING A 3 WEEK CYCLE. THERAPY PERMANENTLY DISCONTINUED.
     Route: 048
     Dates: start: 20080328, end: 20080329
  2. LANSOPRAZOLE. [Concomitant]
     Active Substance: LANSOPRAZOLE
     Route: 065
     Dates: start: 20080402, end: 20080407
  3. CISPLATIN. [Suspect]
     Active Substance: CISPLATIN
     Indication: GASTRIC CANCER
     Dosage: DOSAGE REPORTED AS: INFUSION. GIVEN ON DAY 1 OF A 3 WEEK CYCLE. THERAPY PERMANENTLY DISCONTINUED.
     Route: 042
     Dates: start: 20080328, end: 20080328
  4. MAGNESIUM OXIDE. [Concomitant]
     Active Substance: MAGNESIUM OXIDE
     Route: 065
     Dates: start: 20080324, end: 20080329
  5. OXYCODONE HYDROCHLORIDE. [Concomitant]
     Active Substance: OXYCODONE HYDROCHLORIDE
     Route: 065
     Dates: start: 20080405, end: 20080407
  6. PROCHLORPERAZINE MALEATE. [Concomitant]
     Active Substance: PROCHLORPERAZINE MALEATE
     Route: 065
     Dates: start: 20080402, end: 20080407
  7. LANSOPRAZOLE. [Concomitant]
     Active Substance: LANSOPRAZOLE
     Route: 065
     Dates: start: 20080324, end: 20080329
  8. ALUMINUM HYDROXIDE. [Concomitant]
     Active Substance: ALUMINUM HYDROXIDE
     Dosage: REPORTED AS: DRIED ALUMINUM HYDROXIDE GEL/MAGNESIUM HYDROXIDE.
     Route: 065
     Dates: start: 20080402, end: 20080407
  9. FLUNITRAZEPAM [Concomitant]
     Active Substance: FLUNITRAZEPAM
     Route: 065
     Dates: start: 20080402, end: 20080407
  10. FLUNITRAZEPAM [Concomitant]
     Active Substance: FLUNITRAZEPAM
     Route: 065
     Dates: start: 20080324, end: 20080329
  11. FERROUS SODIUM CITRATE [Concomitant]
     Dosage: TDD REPORTED AS 100.
     Route: 065
     Dates: start: 20080324, end: 20080329
  12. SUCRALFATE. [Concomitant]
     Active Substance: SUCRALFATE
     Route: 065
     Dates: start: 20080402, end: 20080407
  13. PLACEBO [Suspect]
     Active Substance: UNSPECIFIED INGREDIENT
     Indication: GASTRIC CANCER
     Dosage: DOSAGE FORM : INFUSION. GIVEN ON DAY ONE OF A 3 WEEK CYCLE.THERAPY PERMANENTLY DISCONTINUED.
     Route: 042
     Dates: start: 20080328, end: 20080328
  14. SUCRALFATE. [Concomitant]
     Active Substance: SUCRALFATE
     Dosage: UNIT REPORTED AS ^P^. DAILY DOSE=3 UNIT
     Route: 065
     Dates: start: 20080324, end: 20080329
  15. ALUMINUM HYDROXIDE. [Concomitant]
     Active Substance: ALUMINUM HYDROXIDE
     Dosage: REPORTED AS DRIED ALUMINUM HYDROXIDE.?UNIT REPORTED AS ^P^. DAILY DOSE=3 UNIT
     Route: 065
     Dates: start: 20080324, end: 20080329
  16. PROCHLORPERAZINE MALEATE. [Concomitant]
     Active Substance: PROCHLORPERAZINE MALEATE
     Route: 065
     Dates: start: 20080324, end: 20080329
  17. OXYCODONE HYDROCHLORIDE. [Concomitant]
     Active Substance: OXYCODONE HYDROCHLORIDE
     Dosage: REPORTED AS OXYCODONE HYDROCHLORIDE HYDRATE.
     Route: 065
     Dates: start: 20080324, end: 20080329
  18. MAGNESIUM OXIDE. [Concomitant]
     Active Substance: MAGNESIUM OXIDE
     Route: 065
     Dates: start: 20080402, end: 20080407
  19. FERROUS SODIUM CITRATE [Concomitant]
     Route: 065
     Dates: start: 20080402, end: 20080407

REACTIONS (3)
  - Pneumonia aspiration [Not Recovered/Not Resolved]
  - Mallory-Weiss syndrome [Recovered/Resolved]
  - Cerebral infarction [Not Recovered/Not Resolved]

NARRATIVE: CASE EVENT DATE: 20080329
